FAERS Safety Report 10643104 (Version 1)
Quarter: 2014Q4

REPORT INFORMATION
  Report Type: Spontaneous
  Country: US (occurrence: None)
  Receive Date: 20141121
  Receipt Date: 20141121
  Transmission Date: 20150529
  Serious: No
  Sender: FDA-Public Use
  Company Number: 163-10004-14082095

PATIENT
  Age: 52 Year
  Sex: Female
  Weight: 69.85 kg

DRUGS (13)
  1. METOPROLOL (METOPROLOL) (UNKNOWN) [Concomitant]
  2. PRILOSEC (OMEPRAZOLE) (UNKNOWN) [Concomitant]
  3. RESTASIS (CICLOSPORIN) (EYE DROPS) [Concomitant]
  4. FISH OIL (FISH OIL) (UNKNOWN) [Concomitant]
  5. CALCITRENE (CALCIPOTRIOL) (UNKNOWN) [Concomitant]
  6. MULTIVITAMINS (MULTIVITAMINS) (UNKNOWN) [Concomitant]
  7. CELEXA (CITALOPRAM HYDROBROMIDE) (UNKNOWN) [Concomitant]
  8. OTEZLA [Suspect]
     Active Substance: APREMILAST
     Indication: PSORIATIC ARTHROPATHY
     Route: 048
     Dates: start: 20140802
  9. TOPICORT (DESOXIMETASONE) (SPRAY (NOT INHALATION)) [Concomitant]
  10. CLONIDINE (CLONIDINE) (UNKNOWN) [Concomitant]
  11. HYZAAR (HYZAAR) (UNKNOWN) [Concomitant]
  12. BIOTIN (BIOTIN) (UNKNOWN) [Concomitant]
  13. BABY ASPIRINE (ACETYLSALICYLIC ACID) (UNKNOWN) [Concomitant]

REACTIONS (3)
  - Nausea [None]
  - Headache [None]
  - Myalgia [None]

NARRATIVE: CASE EVENT DATE: 20140805
